FAERS Safety Report 5903279-X (Version None)
Quarter: 2008Q3

REPORT INFORMATION
  Report Type: 
  Country: None (occurrence: None)
  Receive Date: 20080930
  Receipt Date: 20080924
  Transmission Date: 20090109
  Serious: Yes (Death)
  Sender: FDA-Public Use
  Company Number: A0742659A

PATIENT
  Age: 71 Year
  Sex: Female
  Weight: 80 kg

DRUGS (3)
  1. AVANDAMET [Suspect]
     Route: 048
     Dates: start: 20060901, end: 20071212
  2. JANUVIA [Concomitant]
  3. METFORMIN HCL [Concomitant]

REACTIONS (1)
  - CARDIAC DISORDER [None]
